FAERS Safety Report 4540708-0 (Version None)
Quarter: 2004Q4

REPORT INFORMATION
  Report Type: 
  Country: None (occurrence: None)
  Receive Date: 20041229
  Receipt Date: 20041217
  Transmission Date: 20050328
  Serious: Yes (Hospitalization)
  Sender: FDA-Public Use
  Company Number: 200414743FR

PATIENT
  Age: 54 Year
  Sex: Male
  Weight: 70 kg

DRUGS (4)
  1. LASILIX 40 MG [Suspect]
     Route: 048
  2. GENTALLINE [Suspect]
     Route: 030
     Dates: start: 20041026, end: 20041108
  3. ALDACTONE [Concomitant]
     Route: 048
  4. DURAGESIC [Concomitant]
     Route: 023

REACTIONS (5)
  - BLOOD UREA INCREASED [None]
  - CEREBELLAR SYNDROME [None]
  - DIZZINESS POSTURAL [None]
  - DRUG INTERACTION [None]
  - TREMOR [None]
